FAERS Safety Report 19245054 (Version 1)
Quarter: 2021Q2

REPORT INFORMATION
  Report Type: Spontaneous
  Country: US (occurrence: US)
  Receive Date: 20210511
  Receipt Date: 20210511
  Transmission Date: 20210717
  Serious: Yes (Other)
  Sender: FDA-Public Use
  Company Number: US-PFIZER INC-2021479061

PATIENT
  Age: 72 Year
  Sex: Female
  Weight: 72.57 kg

DRUGS (1)
  1. PREMARIN [Suspect]
     Active Substance: ESTROGENS, CONJUGATED
     Dosage: 1.25 TABLETS (365 DAYS A YEAR)
     Dates: end: 20210330

REACTIONS (17)
  - Discomfort [Unknown]
  - Memory impairment [Unknown]
  - Feeling abnormal [Unknown]
  - Libido decreased [Unknown]
  - Crying [Unknown]
  - Blood oestrogen decreased [Unknown]
  - Skin burning sensation [Unknown]
  - Vulvovaginal dryness [Unknown]
  - Vulvovaginal pain [Unknown]
  - Asthenia [Unknown]
  - Hot flush [Unknown]
  - Withdrawal syndrome [Unknown]
  - Sluggishness [Unknown]
  - Middle insomnia [Unknown]
  - Weight increased [Unknown]
  - Constipation [Unknown]
  - Ageusia [Unknown]
